FAERS Safety Report 5800868-8 (Version None)
Quarter: 2008Q3

REPORT INFORMATION
  Report Type: 
  Country: None (occurrence: None)
  Receive Date: 20080703
  Receipt Date: 20080623
  Transmission Date: 20090109
  Serious: Yes (Other)
  Sender: FDA-Public Use
  Company Number: US-ABBOTT-08P-163-0459574-00

PATIENT
  Age: 21 Year
  Sex: Female
  Weight: 63.9 kg

DRUGS (6)
  1. NORVIR [Suspect]
     Indication: DRUG USE FOR UNKNOWN INDICATION
  2. MARAVIROC [Suspect]
     Indication: HIV INFECTION
     Route: 048
     Dates: start: 20070701
  3. RALTEGRAVIR [Suspect]
     Indication: DRUG USE FOR UNKNOWN INDICATION
  4. TRIZIVIR [Suspect]
     Indication: DRUG USE FOR UNKNOWN INDICATION
  5. TENOFOVIR [Suspect]
     Indication: DRUG USE FOR UNKNOWN INDICATION
  6. DARUNAVIR [Suspect]
     Indication: DRUG USE FOR UNKNOWN INDICATION

REACTIONS (1)
  - LIPODYSTROPHY ACQUIRED [None]
